FAERS Safety Report 16462970 (Version 3)
Quarter: 2019Q3

REPORT INFORMATION
  Report Type: Spontaneous
  Country: US (occurrence: US)
  Receive Date: 20190621
  Receipt Date: 20190925
  Transmission Date: 20191004
  Serious: Yes (Other)
  Sender: FDA-Public Use
  Company Number: US-ASTRAZENECA-2019SE10746

PATIENT
  Age: 40 Year
  Sex: Female
  Weight: 56.2 kg

DRUGS (44)
  1. MELOXICAM. [Concomitant]
     Active Substance: MELOXICAM
  2. AMOX TR-K CLV [Concomitant]
     Active Substance: AMOXICILLIN\CLAVULANATE POTASSIUM
  3. PAROXETINE. [Concomitant]
     Active Substance: PAROXETINE
  4. CARBAMAZEPINE. [Concomitant]
     Active Substance: CARBAMAZEPINE
  5. NORTRIPTYLINE [Concomitant]
     Active Substance: NORTRIPTYLINE
  6. ZANTAC 150 OTC [Concomitant]
     Dosage: 1990^S/2000^S
  7. PRILOSEC [Suspect]
     Active Substance: OMEPRAZOLE MAGNESIUM
     Indication: GASTROOESOPHAGEAL REFLUX DISEASE
     Dosage: 40.0MG UNKNOWN
     Route: 048
     Dates: start: 1990
  8. MIRTAZAPINE. [Concomitant]
     Active Substance: MIRTAZAPINE
  9. OXYCODONE [Concomitant]
     Active Substance: OXYCODONE
  10. PRILOSEC OTC [Suspect]
     Active Substance: OMEPRAZOLE MAGNESIUM
     Indication: GASTROOESOPHAGEAL REFLUX DISEASE
     Dosage: 40.0MG UNKNOWN
     Route: 048
     Dates: start: 1990, end: 2000
  11. PROTONIX [Suspect]
     Active Substance: PANTOPRAZOLE SODIUM
     Indication: GASTROOESOPHAGEAL REFLUX DISEASE
     Dosage: 40.0MG UNKNOWN
     Route: 065
     Dates: start: 2017
  12. TIZANIDINE. [Concomitant]
     Active Substance: TIZANIDINE
  13. CYPROHEPTADINE. [Concomitant]
     Active Substance: CYPROHEPTADINE
  14. AMITRIPTYLINE [Concomitant]
     Active Substance: AMITRIPTYLINE
  15. TYLENOL [Concomitant]
     Active Substance: ACETAMINOPHEN
     Indication: PAIN
     Dates: start: 2017
  16. MYLANTA [Concomitant]
     Active Substance: ALUMINUM HYDROXIDE\DIMETHICONE\MAGNESIUM HYDROXIDE
     Dosage: 1990^S/2000^S
  17. NEXIUM [Suspect]
     Active Substance: ESOMEPRAZOLE MAGNESIUM
     Indication: GASTROOESOPHAGEAL REFLUX DISEASE
     Route: 048
  18. PREVACID 24 HR [Suspect]
     Active Substance: LANSOPRAZOLE
     Indication: GASTROOESOPHAGEAL REFLUX DISEASE
     Dosage: 40.0MG UNKNOWN
     Route: 065
     Dates: start: 1990
  19. GABAPENTIN. [Concomitant]
     Active Substance: GABAPENTIN
  20. HYDROCODONE [Concomitant]
     Active Substance: HYDROCODONE
  21. METHYLPREDNISOLONE. [Concomitant]
     Active Substance: METHYLPREDNISOLONE
  22. FLUCONAZOLE. [Concomitant]
     Active Substance: FLUCONAZOLE
  23. TRAZODONE [Concomitant]
     Active Substance: TRAZODONE HYDROCHLORIDE
  24. DULOXETINE. [Concomitant]
     Active Substance: DULOXETINE
  25. ALBUTEROL. [Concomitant]
     Active Substance: ALBUTEROL
  26. LEVOFLOXACIN. [Concomitant]
     Active Substance: LEVOFLOXACIN
  27. NEXIUM [Suspect]
     Active Substance: ESOMEPRAZOLE MAGNESIUM
     Indication: GASTROOESOPHAGEAL REFLUX DISEASE
     Dosage: 40.0MG UNKNOWN
     Route: 048
     Dates: start: 1990
  28. NEXIUM 24HR [Suspect]
     Active Substance: ESOMEPRAZOLE MAGNESIUM
     Indication: GASTROOESOPHAGEAL REFLUX DISEASE
     Route: 048
  29. NEXIUM 24HR [Suspect]
     Active Substance: ESOMEPRAZOLE MAGNESIUM
     Indication: GASTROOESOPHAGEAL REFLUX DISEASE
     Dosage: 40.0MG UNKNOWN
     Route: 048
     Dates: start: 1990
  30. PRILOSEC [Suspect]
     Active Substance: OMEPRAZOLE MAGNESIUM
     Indication: GASTROOESOPHAGEAL REFLUX DISEASE
     Route: 048
  31. PROMETHAZINE [Concomitant]
     Active Substance: PROMETHAZINE HYDROCHLORIDE
  32. SERTRALINE [Concomitant]
     Active Substance: SERTRALINE HYDROCHLORIDE
  33. FERROUS SULFATE. [Concomitant]
     Active Substance: FERROUS SULFATE
  34. TYLENOL [Concomitant]
     Active Substance: ACETAMINOPHEN
     Indication: PAIN
     Dates: start: 2017
  35. DEXAMETHASONE. [Concomitant]
     Active Substance: DEXAMETHASONE
  36. PENICILLIN [Concomitant]
     Active Substance: PENICILLIN
  37. TUMS [Concomitant]
     Active Substance: CALCIUM CARBONATE
     Dosage: 1990^S/2000^S
  38. PRILOSEC [Suspect]
     Active Substance: OMEPRAZOLE MAGNESIUM
     Indication: GASTROOESOPHAGEAL REFLUX DISEASE
     Dosage: GENERIC OMEPRAZOLE
     Route: 065
     Dates: start: 2011
  39. PREVACID [Suspect]
     Active Substance: LANSOPRAZOLE
     Indication: GASTROOESOPHAGEAL REFLUX DISEASE
     Dosage: 40.0MG UNKNOWN
     Route: 065
     Dates: start: 1990
  40. HYDROXYZINE [Concomitant]
     Active Substance: HYDROXYZINE HYDROCHLORIDE
  41. LYRICA [Concomitant]
     Active Substance: PREGABALIN
  42. RIZATRIPTAN. [Concomitant]
     Active Substance: RIZATRIPTAN
  43. CITALOPRAM [Concomitant]
     Active Substance: CITALOPRAM HYDROBROMIDE
  44. PEPCID [Concomitant]
     Active Substance: FAMOTIDINE
     Dosage: PRESCRIPTION
     Dates: start: 1990

REACTIONS (4)
  - Renal failure [Not Recovered/Not Resolved]
  - Chronic kidney disease [Unknown]
  - Renal injury [Unknown]
  - Rebound acid hypersecretion [Unknown]

NARRATIVE: CASE EVENT DATE: 2012
